FAERS Safety Report 7802554-1 (Version None)
Quarter: 2011Q4

REPORT INFORMATION
  Report Type: 
  Country: None (occurrence: None)
  Receive Date: 20111007
  Receipt Date: 20110926
  Transmission Date: 20120403
  Serious: Yes (Death, Hospitalization, Other)
  Sender: FDA-Public Use
  Company Number: US-BAYER-201010659NA

PATIENT
  Age: 54 Year
  Sex: Male
  Weight: 91 kg

DRUGS (33)
  1. PREDNISONE [Concomitant]
     Dosage: 10 MG, BID
     Route: 048
     Dates: start: 20040101
  2. PLAQUENIL [Concomitant]
     Dosage: 200MG/5ML DAILY
     Route: 048
  3. TRASYLOL [Suspect]
     Indication: STERNOTOMY
     Dosage: 3ML OTHER: 200CC PUMP PRIME PER PERFUSIONIST
     Route: 042
     Dates: start: 20070316, end: 20070316
  4. CALCIUM CHLORIDE [Concomitant]
     Dosage: 1000 MG, UNK
     Route: 042
     Dates: start: 20070316
  5. CEFURIN [Concomitant]
     Dosage: 3 G, UNK
     Route: 042
     Dates: start: 20070316
  6. HEPARIN [Concomitant]
     Dosage: 2800 U, UNK
     Route: 042
     Dates: start: 20070316
  7. CLONIDINE [Concomitant]
     Dosage: 0.1MG
     Route: 048
     Dates: start: 20070311
  8. VYTONE [Concomitant]
     Dosage: UNK
     Route: 048
     Dates: start: 20070201
  9. VERSED [Concomitant]
     Dosage: 5 MG, UNK
     Route: 042
     Dates: start: 20070316
  10. SUFENTA PRESERVATIVE FREE [Concomitant]
     Dosage: 1500 UQ, UNK
     Route: 042
     Dates: start: 20070316
  11. TRASYLOL [Suspect]
     Indication: AORTIC VALVE REPLACEMENT
     Dosage: 400 ML/HR, UNK
     Route: 042
     Dates: start: 20070316, end: 20070316
  12. COREG [Concomitant]
     Dosage: 25 MG, BID
     Route: 048
     Dates: start: 20070201
  13. HYDRALAZINE HCL [Concomitant]
     Dosage: 10MG
     Route: 042
     Dates: start: 20070311
  14. LIDOCAINE [Concomitant]
     Dosage: 100 MG, UNK
     Route: 042
     Dates: start: 20070316
  15. PANCURONIUM [Concomitant]
     Dosage: 10 MG, UNK
     Route: 042
     Dates: start: 20070316
  16. RED BLOOD CELLS [Concomitant]
     Dosage: UNK
     Dates: start: 20070316
  17. TYLENOL REGULAR [Concomitant]
     Dosage: 650MG
     Route: 048
     Dates: start: 20070311
  18. ALTACE [Concomitant]
     Dosage: 10 MG, BID
     Route: 048
     Dates: start: 20040101
  19. DIPHENHYDRAMINE HCL [Concomitant]
     Dosage: 100 MG, UNK
     Route: 042
     Dates: start: 20070316
  20. MULTIVITAMINS WITH MINERALS [MULTIVITAMINS WITH MINERALS] [Concomitant]
     Dosage: DAILY
     Route: 048
  21. FUROSEMIDE [Concomitant]
     Dosage: 40 MG, QD
     Route: 048
     Dates: start: 20070201
  22. PROTAMINE [Concomitant]
     Dosage: 250 MG, UNK
     Route: 042
     Dates: start: 20070316
  23. TPN [Concomitant]
     Dosage: 600 ML, UNK
     Route: 042
     Dates: start: 20070316
  24. VYTORIN [Concomitant]
     Dosage: 10/40MG DAILY
     Route: 048
  25. TRASYLOL [Suspect]
     Dosage: UNK
     Route: 042
     Dates: start: 20040212
  26. FAMOTIDINE [Concomitant]
     Dosage: 20 MG, UNK
     Route: 042
     Dates: start: 20070316
  27. TRASYLOL [Suspect]
     Indication: CORONARY ARTERY BYPASS
     Dosage: 50 ML/HR, UNK
     Route: 042
     Dates: start: 20070316, end: 20070316
  28. GABAPENTIN [Concomitant]
     Dosage: 300 MG, HS
     Route: 048
     Dates: start: 20070201
  29. NIFEDIAC CC [Concomitant]
     Dosage: UNK
     Route: 048
     Dates: start: 20070201
  30. ASPIRIN [Concomitant]
     Dosage: 325 MG, QD
     Route: 048
     Dates: start: 20070201
  31. HYDRALAZINE HCL [Concomitant]
     Dosage: 5 MG, UNK
     Route: 042
     Dates: start: 20070316
  32. LOVENOX [Concomitant]
     Dosage: 90MG
     Route: 058
     Dates: start: 20070311
  33. PROCARDIA XL [Suspect]
     Dosage: 60 MG, QD
     Route: 048

REACTIONS (14)
  - FEAR [None]
  - RENAL FAILURE [None]
  - MULTI-ORGAN FAILURE [None]
  - EMOTIONAL DISTRESS [None]
  - STRESS [None]
  - ANXIETY [None]
  - RENAL INJURY [None]
  - INJURY [None]
  - DEATH [None]
  - CEREBROVASCULAR ACCIDENT [None]
  - UNEVALUABLE EVENT [None]
  - RENAL IMPAIRMENT [None]
  - PAIN [None]
  - ANHEDONIA [None]
